FAERS Safety Report 7162421-6 (Version None)
Quarter: 2010Q4

REPORT INFORMATION
  Report Type: 
  Country: None (occurrence: None)
  Receive Date: 20101215
  Receipt Date: 20091110
  Transmission Date: 20110411
  Serious: Yes (Other)
  Sender: FDA-Public Use
  Company Number: US-PFIZER INC-2009273044

PATIENT
  Sex: Female

DRUGS (4)
  1. LYRICA [Suspect]
     Indication: ARTHRALGIA
     Dosage: 75 MG, 2X/DAY
  2. LYRICA [Suspect]
     Dosage: 75 MG, 3X/DAY
  3. LYRICA [Suspect]
     Dosage: 150 MG, 2X/DAY
  4. LYRICA [Suspect]
     Dosage: 150 MG, 3X/DAY

REACTIONS (5)
  - DIZZINESS [None]
  - DYSPHAGIA [None]
  - DYSSTASIA [None]
  - SOMNOLENCE [None]
  - SPEECH DISORDER [None]
